FAERS Safety Report 14198048 (Version 2)
Quarter: 2017Q4

REPORT INFORMATION
  Report Type: Spontaneous
  Country: JP (occurrence: JP)
  Receive Date: 20171117
  Receipt Date: 20171229
  Transmission Date: 20180321
  Serious: Yes (Other)
  Sender: FDA-Public Use
  Company Number: JP-AMGEN-JPNSP2017171939

PATIENT
  Age: 44 Year
  Sex: Female

DRUGS (1)
  1. RANMARK [Suspect]
     Active Substance: DENOSUMAB
     Indication: BONE LESION
     Dosage: 120 MG, Q4WK (TOTAL 11 TIMES)
     Route: 058
     Dates: start: 20150613, end: 20160401

REACTIONS (1)
  - Osteonecrosis of jaw [Recovering/Resolving]

NARRATIVE: CASE EVENT DATE: 20160415
